FAERS Safety Report 5333321-9 (Version None)
Quarter: 2007Q2

REPORT INFORMATION
  Report Type: 
  Country: None (occurrence: None)
  Receive Date: 20070524
  Receipt Date: 20070514
  Transmission Date: 20071010
  Serious: Yes (Hospitalization)
  Sender: FDA-Public Use
  Company Number: US-AMGEN-STX224814

PATIENT
  Sex: Female

DRUGS (2)
  1. ENBREL [Suspect]
     Indication: RHEUMATOID ARTHRITIS
     Route: 058
     Dates: start: 20051025
  2. METHOTREXATE [Concomitant]
     Route: 065
     Dates: start: 20070501

REACTIONS (2)
  - HIP ARTHROPLASTY [None]
  - INJECTION SITE PAIN [None]
